FAERS Safety Report 13392013 (Version 1)
Quarter: 2017Q1

REPORT INFORMATION
  Report Type: Report from Study
  Country: None (occurrence: IT)
  Receive Date: 20170331
  Receipt Date: 20170331
  Transmission Date: 20170429
  Serious: Yes (Death)
  Sender: FDA-Public Use
  Company Number: IT-ABBVIE-17P-083-1923843-00

PATIENT
  Sex: Male
  Weight: 62 kg

DRUGS (1)
  1. DUODOPA [Suspect]
     Active Substance: CARBIDOPA\LEVODOPA
     Indication: PARKINSON^S DISEASE
     Dosage: MD 11+3, CR 4.5, ED 4
     Route: 050
     Dates: start: 20110318, end: 20170325

REACTIONS (2)
  - Pneumonia aspiration [Fatal]
  - General physical health deterioration [Fatal]
